FAERS Safety Report 24864395 (Version 1)
Quarter: 2025Q1

REPORT INFORMATION
  Report Type: Spontaneous
  Country: US (occurrence: US)
  Receive Date: 20250120
  Receipt Date: 20250120
  Transmission Date: 20250409
  Serious: Yes (Life-Threatening, Hospitalization, Other)
  Sender: AMGEN
  Company Number: US-AMGEN-USASP2025007753

PATIENT
  Age: 73 Year
  Sex: Male

DRUGS (3)
  1. PREDNISONE [Suspect]
     Active Substance: PREDNISONE
     Indication: Immunosuppression
     Route: 065
  2. TACROLIMUS [Concomitant]
     Active Substance: TACROLIMUS
     Indication: Immunosuppression
     Route: 065
  3. MYCOPHENOLIC ACID [Concomitant]
     Active Substance: MYCOPHENOLIC ACID
     Indication: Immunosuppression
     Route: 065

REACTIONS (7)
  - Disseminated cryptococcosis [Unknown]
  - Failure to thrive [Unknown]
  - Renal impairment [Unknown]
  - Left ventricular dysfunction [Unknown]
  - Right ventricular dysfunction [Unknown]
  - Cardiac index abnormal [Unknown]
  - Cardiac valve vegetation [Unknown]
